FAERS Safety Report 8816454 (Version 1)
Quarter: 2012Q4

REPORT INFORMATION
  Report Type: Spontaneous
  Country: US (occurrence: None)
  Receive Date: 20120928
  Receipt Date: 20120928
  Transmission Date: 20130627
  Serious: No
  Sender: FDA-Public Use
  Company Number: None

PATIENT
  Age: 5 Year
  Sex: Male
  Weight: 16.33 kg

DRUGS (2)
  1. TRILEPTAL [Suspect]
     Dosage: 7 ml bid po
     Route: 048
  2. KEPPRA [Suspect]
     Dosage: 2 ml bid po
     Route: 048

REACTIONS (1)
  - Epistaxis [None]
